FAERS Safety Report 14558583 (Version 3)
Quarter: 2018Q2

REPORT INFORMATION
  Report Type: Not Available
  Country: US (occurrence: US)
  Receive Date: 20180221
  Receipt Date: 20180614
  Transmission Date: 20180711
  Serious: No
  Sender: FDA-Public Use
  Company Number: US-NEUROCRINE BIOSCIENCES INC.-2018NBI00173

PATIENT
  Sex: Male

DRUGS (7)
  1. INGREZZA [Suspect]
     Active Substance: VALBENAZINE
     Route: 048
     Dates: start: 20180104, end: 20180524
  2. TAMSULOSIN [Concomitant]
     Active Substance: TAMSULOSIN
  3. DIAZEPAM. [Suspect]
     Active Substance: DIAZEPAM
     Indication: BRUXISM
  4. ADDERALL [Concomitant]
     Active Substance: AMPHETAMINE ASPARTATE\AMPHETAMINE SULFATE\DEXTROAMPHETAMINE SACCHARATE\DEXTROAMPHETAMINE SULFATE
     Indication: CENTRAL NERVOUS SYSTEM STIMULATION
     Dosage: 5:30 AM AND 630 AM
  5. INGREZZA [Suspect]
     Active Substance: VALBENAZINE
     Indication: PRODUCT USED FOR UNKNOWN INDICATION
     Route: 048
     Dates: start: 20171228, end: 20180103
  6. LYRICA [Concomitant]
     Active Substance: PREGABALIN
     Indication: SEIZURE
  7. CYMBALTA [Concomitant]
     Active Substance: DULOXETINE HYDROCHLORIDE
     Indication: DEPRESSION
     Dosage: EVERY NIGHT

REACTIONS (3)
  - Dyskinesia [Unknown]
  - Fatigue [Unknown]
  - Confusional state [Unknown]
